FAERS Safety Report 6567031-7 (Version None)
Quarter: 2010Q1

REPORT INFORMATION
  Report Type: 
  Country: None (occurrence: None)
  Receive Date: 20100202
  Receipt Date: 20100125
  Transmission Date: 20100710
  Serious: Yes (Other)
  Sender: FDA-Public Use
  Company Number: GXKR2010PL01158

PATIENT
  Age: 13 Year
  Sex: Female

DRUGS (2)
  1. FLUVOXAMINE (NGX) [Suspect]
     Indication: GENERALISED ANXIETY DISORDER
     Dosage: 75 MG, UNK
     Route: 065
  2. FLUVOXAMINE (NGX) [Suspect]
     Dosage: 50 MG, UNK
     Route: 065

REACTIONS (2)
  - ELECTROCARDIOGRAM QT PROLONGED [None]
  - HEART RATE IRREGULAR [None]
